FAERS Safety Report 12789743 (Version 2)
Quarter: 2016Q4

REPORT INFORMATION
  Report Type: Spontaneous
  Country: BR (occurrence: BR)
  Receive Date: 20160928
  Receipt Date: 20161007
  Transmission Date: 20170207
  Serious: Yes (Life-Threatening, Hospitalization)
  Sender: FDA-Public Use
  Company Number: BR-ELI_LILLY_AND_COMPANY-BR201609010046

PATIENT
  Sex: Female
  Weight: 74.9 kg

DRUGS (7)
  1. GEMZAR [Suspect]
     Active Substance: GEMCITABINE HYDROCHLORIDE
     Indication: METASTASES TO LUNG
     Dosage: 1377 MG, UNKNOWN
     Route: 042
     Dates: start: 20160707, end: 20160714
  2. FAULDCISPLA [Concomitant]
     Active Substance: CISPLATIN
     Indication: METASTASES TO LUNG
  3. KYTRIL [Concomitant]
     Active Substance: GRANISETRON HYDROCHLORIDE
     Indication: PRODUCT USED FOR UNKNOWN INDICATION
     Dosage: UNK, UNKNOWN
     Route: 065
  4. MANITOL [Concomitant]
     Indication: PRODUCT USED FOR UNKNOWN INDICATION
     Dosage: UNK, UNKNOWN
     Route: 065
  5. FAULDCISPLA [Concomitant]
     Active Substance: CISPLATIN
     Indication: BREAST CANCER METASTATIC
     Dosage: 55.08 MG, UNKNOWN
     Route: 042
  6. GEMZAR [Suspect]
     Active Substance: GEMCITABINE HYDROCHLORIDE
     Indication: BREAST CANCER METASTATIC
     Dosage: 1377 MG, UNKNOWN
     Route: 042
     Dates: start: 20160707, end: 20160714
  7. DEXAMETASONA                       /00016001/ [Concomitant]
     Active Substance: DEXAMETHASONE
     Indication: PRODUCT USED FOR UNKNOWN INDICATION
     Dosage: UNK, UNKNOWN
     Route: 065

REACTIONS (6)
  - Thrombocytopenia [Unknown]
  - Respiratory failure [Unknown]
  - Otorrhoea [Unknown]
  - Lung infection [Unknown]
  - Somnolence [Unknown]
  - Pyrexia [Unknown]
